FAERS Safety Report 20601409 (Version 1)
Quarter: 2022Q1

REPORT INFORMATION
  Report Type: Spontaneous
  Country: US (occurrence: US)
  Receive Date: 20220316
  Receipt Date: 20220316
  Transmission Date: 20220424
  Serious: Yes (Other)
  Sender: FDA-Public Use
  Company Number: US-MYLANLABS-2022M1019837

PATIENT
  Age: 26 Year
  Sex: Male

DRUGS (3)
  1. CARBOPLATIN [Suspect]
     Active Substance: CARBOPLATIN
     Indication: Oesophageal squamous cell carcinoma
     Dosage: UNK, QW,DELIVERED WEEKLY AT AREA UNDER THE
     Route: 065
  2. PACLITAXEL [Suspect]
     Active Substance: PACLITAXEL
     Indication: Oesophageal squamous cell carcinoma
     Dosage: 50 MILLIGRAM/SQ. METER, CYCLE,50 MG/M2 FOR FIRST 2 CYCLE
     Route: 065
  3. PACLITAXEL [Suspect]
     Active Substance: PACLITAXEL
     Dosage: 25 MILLIGRAM/SQ. METER, CYCLE,DOSE REDUCED FOR THIRD CYCLE
     Route: 065

REACTIONS (9)
  - Nausea [Recovering/Resolving]
  - Vomiting [Recovering/Resolving]
  - Off label use [Recovering/Resolving]
  - Infusion related reaction [Recovering/Resolving]
  - Stomatitis [Recovering/Resolving]
  - Myalgia [Recovering/Resolving]
  - Dyspepsia [Recovering/Resolving]
  - Oesophagitis [Recovering/Resolving]
  - Sensation of foreign body [Unknown]
